FAERS Safety Report 13828026 (Version 1)
Quarter: 2017Q3

REPORT INFORMATION
  Report Type: Spontaneous
  Country: US (occurrence: US)
  Receive Date: 20170803
  Receipt Date: 20170803
  Transmission Date: 20171127
  Serious: Yes (Other)
  Sender: FDA-Public Use
  Company Number: US-ROCHE-1969853

PATIENT
  Age: 70 Year
  Sex: Female

DRUGS (2)
  1. TEMODAR [Concomitant]
     Active Substance: TEMOZOLOMIDE
     Indication: GLIOBLASTOMA
     Dosage: TWICE DAILY 5 WEEKS ON ONE MONTH FREE
     Route: 048
     Dates: end: 201706
  2. AVASTIN [Suspect]
     Active Substance: BEVACIZUMAB
     Indication: GLIOBLASTOMA
     Dosage: ONGOING: YES
     Route: 042
     Dates: start: 201605

REACTIONS (7)
  - Motor dysfunction [Recovered/Resolved]
  - Incontinence [Recovered/Resolved]
  - Cytomegalovirus infection [Not Recovered/Not Resolved]
  - Orthostatic hypotension [Recovered/Resolved]
  - Hypersomnia [Recovered/Resolved]
  - Mental disorder [Recovered/Resolved]
  - Decreased appetite [Recovered/Resolved]

NARRATIVE: CASE EVENT DATE: 201706
